FAERS Safety Report 9377195 (Version 3)
Quarter: 2013Q4

REPORT INFORMATION
  Report Type: Spontaneous
  Country: US (occurrence: US)
  Receive Date: 20130701
  Receipt Date: 20131025
  Transmission Date: 20140711
  Serious: Yes (Life-Threatening, Hospitalization)
  Sender: FDA-Public Use
  Company Number: US-BAYER-2013-077733

PATIENT
  Age: 22 Year
  Sex: Female
  Weight: 54.42 kg

DRUGS (1)
  1. MIRENA [Suspect]
     Indication: CONTRACEPTION
     Dosage: 20 MCG/24HR, CONT
     Route: 015
     Dates: start: 20070725, end: 20100806

REACTIONS (15)
  - Uterine perforation [None]
  - Injury [None]
  - Device issue [None]
  - Pelvic pain [None]
  - Menorrhagia [None]
  - Device difficult to use [None]
  - Device difficult to use [None]
  - Pain [None]
  - General physical health deterioration [None]
  - Anxiety [None]
  - Anhedonia [None]
  - Ovarian cyst [None]
  - Procedural nausea [None]
  - Dyspareunia [None]
  - Abdominal distension [None]
